FAERS Safety Report 8773358 (Version 1)
Quarter: 2012Q4

REPORT INFORMATION
  Report Type: 
  Country: US (occurrence: US)
  Receive Date: 20120907
  Receipt Date: 20120907
  Transmission Date: 20130627
  Serious: No
  Sender: FDA-Public Use
  Company Number: US-BAYER-2012-092921

PATIENT
  Sex: Male
  Weight: 112 kg

DRUGS (7)
  1. BETASERON [Suspect]
     Dosage: .25 mg, QOD
     Route: 058
  2. VITAMIN B12 [Concomitant]
     Dosage: 500 ?g, UNK
  3. AMITRIPTYLIN [Concomitant]
     Dosage: 10 mg, UNK
  4. LISINOPRIL [Concomitant]
     Dosage: 20 mg, UNK
  5. IBUPROFEN [Concomitant]
  6. OMEGA 3 [Concomitant]
  7. VITAMIN D [Concomitant]
     Dosage: 1000 u, UNK

REACTIONS (2)
  - Influenza like illness [Unknown]
  - Diarrhoea [Unknown]
